FAERS Safety Report 13804864 (Version 1)
Quarter: 2017Q3

REPORT INFORMATION
  Report Type: Spontaneous
  Country: US (occurrence: US)
  Receive Date: 20170728
  Receipt Date: 20170728
  Transmission Date: 20171127
  Serious: Yes (Other)
  Sender: FDA-Public Use
  Company Number: None

PATIENT
  Age: 65 Year
  Sex: Female
  Weight: 74.25 kg

DRUGS (9)
  1. ATENOLOL. [Concomitant]
     Active Substance: ATENOLOL
  2. BABY ASPIRIN [Concomitant]
     Active Substance: ASPIRIN
  3. IBUPROFEN. [Concomitant]
     Active Substance: IBUPROFEN
  4. FOLIC ACID. [Concomitant]
     Active Substance: FOLIC ACID
  5. PREDNISONE. [Concomitant]
     Active Substance: PREDNISONE
  6. METHOTREXATE. [Concomitant]
     Active Substance: METHOTREXATE
  7. LIPITOR [Concomitant]
     Active Substance: ATORVASTATIN CALCIUM
  8. KEFLEX [Suspect]
     Active Substance: CEPHALEXIN
     Indication: POSTOPERATIVE CARE
     Dosage: ?          QUANTITY:20 CAPSULE(S);?
     Route: 048
     Dates: start: 20170727, end: 20170727
  9. CLONAZEPAM. [Concomitant]
     Active Substance: CLONAZEPAM

REACTIONS (5)
  - Asthenia [None]
  - Product odour abnormal [None]
  - Pallor [None]
  - Diarrhoea [None]
  - Vomiting [None]

NARRATIVE: CASE EVENT DATE: 20170727
